FAERS Safety Report 23869255 (Version 1)
Quarter: 2024Q2

REPORT INFORMATION
  Report Type: Spontaneous
  Country: US (occurrence: None)
  Receive Date: 20240517
  Receipt Date: 20240517
  Transmission Date: 20240716
  Serious: Yes (Hospitalization)
  Sender: FDA-Public Use
  Company Number: None

PATIENT
  Age: 64 Year
  Sex: Female
  Weight: 69.7 kg

DRUGS (1)
  1. TRABECTEDIN [Suspect]
     Active Substance: TRABECTEDIN
     Dates: end: 20240506

REACTIONS (4)
  - Faeces discoloured [None]
  - Dizziness [None]
  - Dyspnoea [None]
  - Haemoglobin decreased [None]

NARRATIVE: CASE EVENT DATE: 20240514
